FAERS Safety Report 21271923 (Version 2)
Quarter: 2023Q1

REPORT INFORMATION
  Report Type: Report from Study
  Country: US (occurrence: US)
  Receive Date: 20220830
  Receipt Date: 20230301
  Transmission Date: 20230417
  Serious: Yes (Other)
  Sender: FDA-Public Use
  Company Number: US-ABBVIE-22K-163-4520671-00

PATIENT
  Sex: Female

DRUGS (2)
  1. HUMIRA [Suspect]
     Active Substance: ADALIMUMAB
     Indication: Hidradenitis
     Route: 058
  2. HUMIRA [Suspect]
     Active Substance: ADALIMUMAB
     Route: 058

REACTIONS (9)
  - Basal cell carcinoma [Not Recovered/Not Resolved]
  - Immunodeficiency [Unknown]
  - Rash [Unknown]
  - Gastritis [Unknown]
  - Deformity [Not Recovered/Not Resolved]
  - Hidradenitis [Unknown]
  - Blindness unilateral [Not Recovered/Not Resolved]
  - Malignant melanoma [Unknown]
  - Food allergy [Unknown]

NARRATIVE: CASE EVENT DATE: 20200101
